FAERS Safety Report 7837158-8 (Version None)
Quarter: 2011Q4

REPORT INFORMATION
  Report Type: 
  Country: None (occurrence: None)
  Receive Date: 20111024
  Receipt Date: 20110823
  Transmission Date: 20120403
  Serious: No
  Sender: FDA-Public Use
  Company Number: US-ABBOTT-11P-163-0849421-00

PATIENT
  Sex: Female
  Weight: 71.278 kg

DRUGS (11)
  1. LUPRON DEPOT [Suspect]
     Indication: ENDOMETRIOSIS
     Route: 030
     Dates: start: 20110811
  2. AMBIEN [Concomitant]
     Indication: INSOMNIA
  3. ZOFRAN [Concomitant]
     Indication: NAUSEA
  4. ATIVAN [Concomitant]
     Indication: ANXIETY
  5. OXYCODONE HCL [Concomitant]
     Indication: PAIN
  6. FLEXERIL [Concomitant]
     Indication: BACK PAIN
  7. ZOFRAN [Concomitant]
     Indication: MOTION SICKNESS
  8. CELEXA [Concomitant]
     Indication: DEPRESSED MOOD
  9. SALSALATE [Concomitant]
     Indication: PAIN
  10. KETOROLAC TROMETHAMINE [Concomitant]
     Indication: ILL-DEFINED DISORDER
  11. NORETHINDRONE [Concomitant]
     Indication: HORMONE THERAPY

REACTIONS (6)
  - ANXIETY [None]
  - HYPERCHLORHYDRIA [None]
  - NAUSEA [None]
  - MOOD SWINGS [None]
  - HOT FLUSH [None]
  - INSOMNIA [None]
